FAERS Safety Report 14669949 (Version 3)
Quarter: 2022Q2

REPORT INFORMATION
  Report Type: Spontaneous
  Country: JP (occurrence: JP)
  Receive Date: 20180322
  Receipt Date: 20220419
  Transmission Date: 20220720
  Serious: Yes (Death, Hospitalization, Other)
  Sender: FDA-Public Use
  Company Number: JP-JT-EVA201800672GILEAD-001

PATIENT
  Age: 51 Year
  Sex: Male

DRUGS (2)
  1. EMTRICITABINE [Suspect]
     Active Substance: EMTRICITABINE
     Indication: HIV infection
     Dosage: UNK
     Route: 048
  2. ISENTRESS [Concomitant]
     Active Substance: RALTEGRAVIR POTASSIUM
     Indication: HIV infection

REACTIONS (2)
  - Tongue neoplasm malignant stage unspecified [Fatal]
  - Mucosal inflammation [Unknown]
